FAERS Safety Report 7420394-2 (Version None)
Quarter: 2011Q2

REPORT INFORMATION
  Report Type: 
  Country: None (occurrence: None)
  Receive Date: 20110418
  Receipt Date: 20110414
  Transmission Date: 20111010
  Serious: Yes (Death)
  Sender: FDA-Public Use
  Company Number: PHHY2011CA31601

PATIENT
  Sex: Male

DRUGS (7)
  1. AMLODIPINE [Concomitant]
  2. CITALOPRAM HYDROBROMIDE [Concomitant]
  3. DOCUSATE [Concomitant]
  4. METFORMIN [Concomitant]
  5. EXJADE [Suspect]
     Indication: MYELODYSPLASTIC SYNDROME
     Dosage: 1250 MG, QD
     Route: 048
  6. ATORVASTATIN [Concomitant]
  7. HYDROCHLOROTHIAZIDE [Concomitant]

REACTIONS (1)
  - DEATH [None]
